FAERS Safety Report 5441419-X (Version None)
Quarter: 2007Q3

REPORT INFORMATION
  Report Type: 
  Country: None (occurrence: None)
  Receive Date: 20070828
  Receipt Date: 20070828
  Transmission Date: 20080115
  Serious: Yes (Hospitalization)
  Sender: FDA-Public Use
  Company Number: None

PATIENT
  Sex: Female
  Weight: 97 kg

DRUGS (8)
  1. SUNITINIB [Suspect]
     Indication: RENAL CANCER METASTATIC
     Dosage: 50 MG QD 28 D, Q 6WK PO
     Route: 048
     Dates: start: 20070530
  2. OXYCODONE HCL [Concomitant]
  3. ECOTRIN [Concomitant]
  4. MULTI-VITAMIN [Concomitant]
  5. TESSALON [Concomitant]
  6. COMPAZINE [Concomitant]
  7. ZOFRAN [Concomitant]
  8. ATENOLOL [Concomitant]

REACTIONS (1)
  - METASTASES TO BONE [None]
